FAERS Safety Report 6083377-3 (Version None)
Quarter: 2009Q1

REPORT INFORMATION
  Report Type: 
  Country: None (occurrence: None)
  Receive Date: 20090219
  Receipt Date: 20090212
  Transmission Date: 20090719
  Serious: Yes (Other)
  Sender: FDA-Public Use
  Company Number: US-BAYER-200910450BCC

PATIENT
  Age: 74 Year
  Sex: Female
  Weight: 59 kg

DRUGS (5)
  1. ASPIRIN [Suspect]
     Indication: DRUG USE FOR UNKNOWN INDICATION
  2. METOPROLOL TARTRATE [Concomitant]
  3. PRAVACHOL [Concomitant]
  4. MAGNESIUM SULFATE [Concomitant]
  5. DETROL [Concomitant]

REACTIONS (1)
  - HAEMORRHAGE URINARY TRACT [None]
